FAERS Safety Report 9325395 (Version 2)
Quarter: 2013Q3

REPORT INFORMATION
  Report Type: Spontaneous
  Country: NZ (occurrence: NZ)
  Receive Date: 20130604
  Receipt Date: 20130904
  Transmission Date: 20140515
  Serious: Yes (Death)
  Sender: FDA-Public Use
  Company Number: NZ-MERCK-1305NZL017616

PATIENT
  Sex: 0

DRUGS (1)
  1. VORINOSTAT [Suspect]
     Route: 048

REACTIONS (1)
  - Death [Fatal]
